FAERS Safety Report 11469003 (Version 1)
Quarter: 2015Q3

REPORT INFORMATION
  Report Type: Spontaneous
  Country: NL (occurrence: NL)
  Receive Date: 20150908
  Receipt Date: 20150908
  Transmission Date: 20151125
  Serious: Yes (Hospitalization)
  Sender: FDA-Public Use
  Company Number: NL-TEVA-591661ISR

PATIENT
  Age: 60 Year
  Sex: Female
  Weight: 55 kg

DRUGS (6)
  1. PREDNISOLON CF 5 MG, TABLETTEN [Suspect]
     Active Substance: PREDNISOLONE
     Indication: POLYMYALGIA RHEUMATICA
     Route: 048
  2. PREDNISOLON RATIOPHARM 5 MG, TABLETTEN [Suspect]
     Active Substance: PREDNISOLONE
     Indication: POLYMYALGIA RHEUMATICA
     Dosage: STARTED WITH 30 MG ONE WEEK, THEN MAINTENANCE DOSE AND GRADUALLY PHASED OUT
     Route: 048
  3. PREDNISOLON MYLAN 30 MG, TABLETTEN [Suspect]
     Active Substance: PREDNISOLONE
     Indication: POLYMYALGIA RHEUMATICA
     Route: 048
     Dates: start: 20130813
  4. PREDNISOLON 5 MG/ML FAGRON MAGISTERIAL DRINK [Suspect]
     Active Substance: PREDNISOLONE
     Indication: POLYMYALGIA RHEUMATICA
     Dates: end: 20150325
  5. RIVOTRIL [Concomitant]
     Active Substance: CLONAZEPAM
     Indication: RESTLESS LEGS SYNDROME
     Dosage: 1.5 MILLIGRAM DAILY;
     Dates: start: 2003
  6. NSAID (NONSTEROIDAL ANTI-INFLAMMATORY DRUGS) [Concomitant]
     Dosage: SOMETIMES

REACTIONS (5)
  - Oesophagitis [Not Recovered/Not Resolved]
  - Mediastinal disorder [Not Recovered/Not Resolved]
  - Lipomatosis [Not Recovered/Not Resolved]
  - Oesophageal disorder [Not Recovered/Not Resolved]
  - Weight decreased [Not Recovered/Not Resolved]

NARRATIVE: CASE EVENT DATE: 20150610
